FAERS Safety Report 14453299 (Version 3)
Quarter: 2018Q1

REPORT INFORMATION
  Report Type: Spontaneous
  Country: EC (occurrence: EC)
  Receive Date: 20180129
  Receipt Date: 20180205
  Transmission Date: 20180509
  Serious: Yes (Other)
  Sender: FDA-Public Use
  Company Number: EC-JNJFOC-20180133153

PATIENT
  Age: 76 Year
  Sex: Female

DRUGS (2)
  1. DIOSMIN [Concomitant]
     Active Substance: DIOSMIN
     Route: 065
  2. XARELTO [Suspect]
     Active Substance: RIVAROXABAN
     Indication: EMBOLISM VENOUS
     Route: 048
     Dates: end: 201801

REACTIONS (1)
  - Rectal haemorrhage [Unknown]
